FAERS Safety Report 11026667 (Version 1)
Quarter: 2015Q2

REPORT INFORMATION
  Report Type: Report from Study
  Country: US (occurrence: US)
  Receive Date: 20150414
  Receipt Date: 20150414
  Transmission Date: 20150821
  Serious: Yes (Hospitalization)
  Sender: FDA-Public Use
  Company Number: US-009507513-1504USA004736

PATIENT
  Age: 58 Year
  Sex: Female

DRUGS (13)
  1. OXYCODONE HYDROCHLORIDE. [Concomitant]
     Active Substance: OXYCODONE HYDROCHLORIDE
     Indication: PAIN
     Dosage: 1-2 TABLETS EVERY 4 HOURS AS NEEDED
     Route: 048
     Dates: start: 20150324
  2. ZOVIRAX [Concomitant]
     Active Substance: ACYCLOVIR
     Dosage: 1 TABLET 2 TIMES DAILY
     Route: 048
     Dates: start: 20140910
  3. ZOFRAN [Concomitant]
     Active Substance: ONDANSETRON HYDROCHLORIDE
     Indication: NAUSEA
     Dosage: 1 TABLET EVERY 6 HOURS AS NEEDED
     Route: 048
     Dates: start: 20150219
  4. BACITRACIN. [Concomitant]
     Active Substance: BACITRACIN
     Dosage: STRENGTH 500 UNITS/G, 1 APPLICATION TO THE SKIN, 3 TIMES DAILY
     Route: 061
  5. PEMBROLIZUMAB. [Suspect]
     Active Substance: PEMBROLIZUMAB
     Indication: PLASMA CELL MYELOMA
     Dosage: 200 MG IV ON DAYS 1 AND 15 OF EVERY CYCLE (EVERY 28 DAYS)
     Route: 042
     Dates: start: 20150324, end: 20150324
  6. POMALIDOMIDE [Suspect]
     Active Substance: POMALIDOMIDE
     Indication: PLASMA CELL MYELOMA
     Dosage: 4 MG, UNK
     Route: 048
     Dates: start: 20150324, end: 20150406
  7. DEXAMETHASONE. [Suspect]
     Active Substance: DEXAMETHASONE
     Indication: PLASMA CELL MYELOMA
     Dosage: 40 MG ORALLY WEEKLY ON D1,8,15 AND 22 OF EVERY CYCLE
     Route: 048
     Dates: start: 20150324, end: 20150331
  8. DUROGESIC [Concomitant]
     Active Substance: FENTANYL
     Dosage: STRENGHT 25 MCG/HR; PLACE 2 PATCHES ONTO THE SKIN EVERY 72 HOURS
     Route: 062
     Dates: start: 20150330
  9. DECADRON [Concomitant]
     Active Substance: DEXAMETHASONE
     Dosage: 10 TABLETS EVERY 7 DAYS
     Route: 048
     Dates: start: 20150317
  10. BACTROBAN (MUPIROCIN) [Concomitant]
     Dosage: APLLY TO ANY SKIN LESIONS AT EARLIEST SIGN, BID UNTIL RESOLVED
     Dates: start: 20140923
  11. ZOFRAN [Concomitant]
     Active Substance: ONDANSETRON HYDROCHLORIDE
     Dosage: 4 MG, EVERY 8 HOURS, PRN
     Route: 048
     Dates: start: 20140313
  12. MONODOX [Concomitant]
     Active Substance: DOXYCYCLINE
     Dosage: 1 CAPSULE 2 TIMES DAILY
     Route: 048
     Dates: start: 20150217
  13. ATIVAN [Concomitant]
     Active Substance: LORAZEPAM
     Dosage: 1 TABLET, EVERY 4 HOURS AS NEEDED
     Route: 048
     Dates: start: 20140219

REACTIONS (3)
  - Alanine aminotransferase increased [Unknown]
  - Blood alkaline phosphatase increased [Unknown]
  - Aspartate aminotransferase increased [Unknown]

NARRATIVE: CASE EVENT DATE: 20150408
